FAERS Safety Report 24004799 (Version 1)
Quarter: 2024Q2

REPORT INFORMATION
  Report Type: Spontaneous
  Country: US (occurrence: None)
  Receive Date: 20240621
  Receipt Date: 20240621
  Transmission Date: 20240716
  Serious: No
  Sender: FDA-Public Use
  Company Number: None

PATIENT
  Age: 20 Year
  Sex: Male
  Weight: 3.21 kg

DRUGS (1)
  1. BEYFORTUS [Suspect]
     Active Substance: NIRSEVIMAB-ALIP
     Dosage: 50 MG ONCE INTRAMUSCULAR
     Route: 030
     Dates: start: 20040604, end: 20040604

REACTIONS (2)
  - Wrong product administered [None]
  - Accidental exposure to product [None]

NARRATIVE: CASE EVENT DATE: 20240604
